FAERS Safety Report 7958178-9 (Version None)
Quarter: 2011Q4

REPORT INFORMATION
  Report Type: 
  Country: None (occurrence: None)
  Receive Date: 20111205
  Receipt Date: 20111119
  Transmission Date: 20120403
  Serious: Yes (Hospitalization, Other)
  Sender: FDA-Public Use
  Company Number: US-SANOFI-AVENTIS-2011SA076381

PATIENT
  Age: 57 Year
  Sex: Female

DRUGS (11)
  1. ISOSORBIDE DINITRATE [Concomitant]
  2. SPIRIVA [Concomitant]
  3. AMLODIPINE [Concomitant]
  4. NOVOLOG [Suspect]
     Indication: TYPE 2 DIABETES MELLITUS
     Route: 065
     Dates: start: 20110101
  5. LASIX [Concomitant]
  6. SOLOSTAR [Suspect]
     Indication: TYPE 2 DIABETES MELLITUS
     Dates: start: 20111001
  7. LIPITOR [Concomitant]
  8. LANTUS [Suspect]
     Indication: TYPE 2 DIABETES MELLITUS
     Dosage: 20-45 UNITS BID
     Route: 058
     Dates: start: 20090101
  9. ALL OTHER THERAPEUTIC PRODUCTS [Concomitant]
  10. KLONOPIN [Concomitant]
  11. SINGULAIR [Concomitant]

REACTIONS (4)
  - MEDICATION ERROR [None]
  - BLISTER [None]
  - HOSPITALISATION [None]
  - WEIGHT DECREASED [None]
